FAERS Safety Report 24387853 (Version 2)
Quarter: 2024Q4

REPORT INFORMATION
  Report Type: Spontaneous
  Country: US (occurrence: US)
  Receive Date: 20241002
  Receipt Date: 20241010
  Transmission Date: 20250115
  Serious: No
  Sender: IPSEN
  Company Number: US-IPSEN Group, Research and Development-2024-19283

PATIENT
  Age: 50 Year
  Sex: Female

DRUGS (4)
  1. DYSPORT [Suspect]
     Active Substance: ABOBOTULINUMTOXINA
     Indication: Skin wrinkling
     Dosage: 30 UNITS IN THE FRONTALIS, 30 UNITS IN THE GLABELLA, AND 30 UNITS IN EACH PERIOCULAR OF THE EYE
     Route: 065
     Dates: start: 20240909, end: 20240909
  2. DYSPORT [Suspect]
     Active Substance: ABOBOTULINUMTOXINA
     Indication: Skin wrinkling
  3. DYSPORT [Suspect]
     Active Substance: ABOBOTULINUMTOXINA
     Indication: Off label use
  4. DYSPORT [Suspect]
     Active Substance: ABOBOTULINUMTOXINA
     Indication: Skin wrinkling

REACTIONS (4)
  - Headache [Recovered/Resolved]
  - Brow ptosis [Not Recovered/Not Resolved]
  - Off label use [Unknown]
  - Product preparation issue [Unknown]

NARRATIVE: CASE EVENT DATE: 20240909
